FAERS Safety Report 7204833-8 (Version None)
Quarter: 2010Q4

REPORT INFORMATION
  Report Type: 
  Country: None (occurrence: None)
  Receive Date: 20101217
  Receipt Date: 20101203
  Transmission Date: 20110411
  Serious: Yes (Hospitalization)
  Sender: FDA-Public Use
  Company Number: TPA2010A06102

PATIENT
  Age: 69 Year
  Sex: Male

DRUGS (3)
  1. ACTOS [Suspect]
     Indication: DIABETES MELLITUS
     Dosage: 30 MG
     Dates: start: 20100101
  2. PLAVIX [Concomitant]
  3. CRESTOR [Concomitant]

REACTIONS (1)
  - CEREBROVASCULAR ACCIDENT [None]
